FAERS Safety Report 5323357-6 (Version None)
Quarter: 2007Q2

REPORT INFORMATION
  Report Type: 
  Country: None (occurrence: None)
  Receive Date: 20070514
  Receipt Date: 20070503
  Transmission Date: 20071010
  Serious: Yes (Hospitalization)
  Sender: FDA-Public Use
  Company Number: PHHO2007US07710

PATIENT
  Age: 69 Year
  Sex: Female

DRUGS (1)
  1. LETROZOLE [Suspect]
     Indication: BREAST CANCER METASTATIC
     Dosage: 2.5 MG, QD
     Route: 048
     Dates: start: 20060621

REACTIONS (5)
  - ANOREXIA [None]
  - ASTHENIA [None]
  - DEAFNESS BILATERAL [None]
  - DEHYDRATION [None]
  - DIZZINESS [None]
